FAERS Safety Report 13621845 (Version 1)
Quarter: 2017Q2

REPORT INFORMATION
  Report Type: Spontaneous
  Country: US (occurrence: US)
  Receive Date: 20170607
  Receipt Date: 20170607
  Transmission Date: 20170830
  Serious: Yes (Other)
  Sender: FDA-Public Use
  Company Number: US-ROCHE-1766006

PATIENT
  Sex: Male

DRUGS (12)
  1. CLONIDINE. [Concomitant]
     Active Substance: CLONIDINE
  2. METFORMIN [Concomitant]
     Active Substance: METFORMIN HYDROCHLORIDE
     Route: 065
  3. XELODA [Suspect]
     Active Substance: CAPECITABINE
     Dosage: 2 BID X14D THEN 7D OFF
     Route: 048
     Dates: start: 20160324
  4. AMLODIPINE [Concomitant]
     Active Substance: AMLODIPINE BESYLATE
  5. XELODA [Suspect]
     Active Substance: CAPECITABINE
     Indication: NEOPLASM MALIGNANT
     Dosage: 3 BID X14D THEN 7D OFF
     Route: 048
     Dates: start: 20160208
  6. PHENAZOPYRIDINE. [Concomitant]
     Active Substance: PHENAZOPYRIDINE
  7. LANTUS [Concomitant]
     Active Substance: INSULIN GLARGINE
  8. ATIVAN [Concomitant]
     Active Substance: LORAZEPAM
  9. NOVOLOG [Concomitant]
     Active Substance: INSULIN ASPART
  10. ZOFRAN [Concomitant]
     Active Substance: ONDANSETRON HYDROCHLORIDE
  11. METOPROLOL TARTRATE. [Concomitant]
     Active Substance: METOPROLOL TARTRATE
  12. TRAMADOL. [Concomitant]
     Active Substance: TRAMADOL

REACTIONS (3)
  - Palmar-plantar erythrodysaesthesia syndrome [Unknown]
  - Pain [Unknown]
  - Skin discolouration [Unknown]
